FAERS Safety Report 6491887-X (Version None)
Quarter: 2009Q4

REPORT INFORMATION
  Report Type: 
  Country: None (occurrence: None)
  Receive Date: 20091208
  Receipt Date: 20091119
  Transmission Date: 20100525
  Serious: Yes (Other)
  Sender: FDA-Public Use
  Company Number: 2009003566

PATIENT
  Age: 58 Year
  Sex: Female

DRUGS (4)
  1. TARCEVA [Suspect]
     Indication: GASTROOESOPHAGEAL CANCER
     Dosage: (150 MG, QD, ORAL)
     Route: 048
     Dates: start: 20091101
  2. AVASTIN [Suspect]
     Indication: GASTROOESOPHAGEAL CANCER
     Dosage: (400 MG Q2W), INTRAVENOUS
     Route: 042
     Dates: start: 20091101
  3. CISPLATIN [Suspect]
     Indication: GASTROOESOPHAGEAL CANCER
     Dosage: INTRAVENOUS
     Route: 042
     Dates: start: 20091101
  4. NEXIUM [Suspect]
     Indication: DRUG USE FOR UNKNOWN INDICATION
     Dosage: INTRAVENOUS
     Route: 042
     Dates: start: 20091102, end: 20091111

REACTIONS (1)
  - TREMOR [None]
